FAERS Safety Report 25445795 (Version 1)
Quarter: 2025Q2

REPORT INFORMATION
  Report Type: Spontaneous
  Country: BR (occurrence: BR)
  Receive Date: 20250617
  Receipt Date: 20250617
  Transmission Date: 20250717
  Serious: Yes (Other)
  Sender: Alora Pharma
  Company Number: BR-VERTICAL PHARMACEUTICALS-2025ALO02281

PATIENT
  Age: 76 Year
  Sex: Female

DRUGS (3)
  1. ESTRADIOL [Suspect]
     Active Substance: ESTRADIOL
     Indication: Postmenopause
     Dates: start: 2022
  2. ESTRADIOL [Suspect]
     Active Substance: ESTRADIOL
     Dosage: STRENGTH: 1 G (1 IN 1 D)
     Dates: start: 2023
  3. OLMESARTAN MEDOXOMIL [Concomitant]
     Active Substance: OLMESARTAN MEDOXOMIL
     Dosage: 40 MG, 1X/DAY

REACTIONS (6)
  - Varicose vein [Unknown]
  - Haemorrhoids [Unknown]
  - Treatment noncompliance [Unknown]
  - Product packaging difficult to open [Unknown]
  - Product complaint [Unknown]
  - Product quality issue [Unknown]
